FAERS Safety Report 14338498 (Version 12)
Quarter: 2025Q4

REPORT INFORMATION
  Report Type: Report from Study
  Country: EU (occurrence: EU)
  Receive Date: 20171229
  Receipt Date: 20251116
  Transmission Date: 20260118
  Serious: Yes (Other)
  Sender: TEVA
  Company Number: None

PATIENT
  Age: 58 Year
  Sex: Female

DRUGS (22)
  1. VENLAFAXINE [Suspect]
     Active Substance: VENLAFAXINE HYDROCHLORIDE
     Indication: Depression
     Dosage: UNK
     Route: 048
     Dates: start: 20161229
  2. VENLAFAXINE [Suspect]
     Active Substance: VENLAFAXINE HYDROCHLORIDE
     Indication: Depression
     Dosage: 1X/DAY
     Route: 048
     Dates: start: 20161128
  3. VENLAFAXINE [Suspect]
     Active Substance: VENLAFAXINE HYDROCHLORIDE
     Indication: Depression
     Dosage: 1X/DAY; VENLAFAXINE HCL
     Route: 048
     Dates: start: 20160907
  4. LACTULOSE [Concomitant]
     Active Substance: LACTULOSE
     Indication: Constipation
     Dosage: 1.00 SPOON TID
     Route: 048
     Dates: start: 20160928
  5. NYSTATIN [Concomitant]
     Active Substance: NYSTATIN
     Indication: Mucosal inflammation
     Dosage: 6.00 ML QID
     Route: 048
     Dates: start: 20161117
  6. MIRTAZAPINE [Concomitant]
     Active Substance: MIRTAZAPINE
     Indication: Depression
     Dosage: 30.00 MG QD
     Route: 048
     Dates: start: 20160907
  7. SENE [Concomitant]
     Indication: Constipation
     Dosage: 2.00 CAPSULE QD
     Route: 048
     Dates: start: 20160928
  8. METHIMAZOLE [Concomitant]
     Active Substance: METHIMAZOLE
     Indication: Thyroid cyst
     Dosage: 5.00 MG QD
     Route: 048
     Dates: start: 20160907
  9. BISACODYL [Concomitant]
     Active Substance: BISACODYL
     Indication: Constipation
     Dosage: 2.00 CAPSULE QD
     Route: 048
     Dates: start: 20160928
  10. MORPHINE SULFATE [Concomitant]
     Active Substance: MORPHINE SULFATE
     Indication: Pain
     Dosage: TIME INTERVAL: AS NECESSARY: 20.00 MG PRN
     Route: 048
     Dates: start: 20160928
  11. MORPHINE SULFATE [Concomitant]
     Active Substance: MORPHINE SULFATE
     Indication: Pain
     Dosage: TIME INTERVAL: AS NECESSARY: 20.00 MG PRN
     Route: 048
     Dates: start: 20161104
  12. PANTOPRAZOLE [Concomitant]
     Active Substance: PANTOPRAZOLE
     Indication: Prophylaxis
     Dosage: 40.00 MG QD
     Route: 048
     Dates: start: 20160928
  13. METHYLPREDNISOLONE [Concomitant]
     Active Substance: METHYLPREDNISOLONE
     Indication: Pain
     Dosage: 0.50 CAPSULE QD
     Route: 048
     Dates: start: 20161021
  14. AMITRIPTYLINE HYDROCHLORIDE [Concomitant]
     Active Substance: AMITRIPTYLINE HYDROCHLORIDE
     Indication: Depression
     Dosage: 25.00 MG BID
     Route: 048
     Dates: start: 20160928
  15. TREMELIMUMAB [Suspect]
     Active Substance: TREMELIMUMAB
     Indication: Non-small cell lung cancer
     Dosage: TIME INTERVAL: CYCLICAL: 1 MG/KG, CYCLIC (ONCE EVERY FOUR WEEKS)
     Route: 042
     Dates: start: 20161104, end: 20161104
  16. TREMELIMUMAB [Suspect]
     Active Substance: TREMELIMUMAB
     Indication: Non-small cell lung cancer
     Dosage: TIME INTERVAL: CYCLICAL: 1 MG/KG, CYCLIC (ONCE EVERY FOUR WEEKS)
     Route: 042
     Dates: start: 20161130, end: 20161130
  17. GABAPENTIN [Concomitant]
     Active Substance: GABAPENTIN
     Indication: Pain
     Dosage: 400.00 MG TID
     Route: 048
     Dates: start: 20160928
  18. SODIUM LAURYL SULFOACETATE [Concomitant]
     Active Substance: SODIUM LAURYL SULFOACETATE
     Indication: Constipation
     Dosage: TIME INTERVAL: CYCLICAL: DOSAGE TEXT: 1.00 ENEMA PRN
     Route: 054
     Dates: start: 20160928
  19. FENTANYL [Concomitant]
     Active Substance: FENTANYL
     Indication: Pain
     Dosage: TIME INTERVAL: CYCLICAL: 50.00 UG EVERY 72H
     Route: 003
     Dates: start: 20160928
  20. CLOBAZAM [Concomitant]
     Active Substance: CLOBAZAM
     Indication: Depression
     Dosage: TIME INTERVAL: AS NECESSARY: 20.00 MG PRN
     Route: 048
     Dates: start: 20160907
  21. DURVALUMAB [Suspect]
     Active Substance: DURVALUMAB
     Indication: Non-small cell lung cancer
     Dosage: TIME INTERVAL: CYCLICAL: 20 MG/KG, CYCLIC (ONCE EVERY FOUR WEEKS)
     Route: 042
     Dates: start: 20161130, end: 20161130
  22. DURVALUMAB [Suspect]
     Active Substance: DURVALUMAB
     Indication: Non-small cell lung cancer
     Dosage: TIME INTERVAL: CYCLICAL: 20 MG/KG, CYCLIC (ONCE EVERY FOUR WEEKS)
     Route: 042
     Dates: start: 20161104, end: 20161104

REACTIONS (1)
  - Drug-induced liver injury [Not Recovered/Not Resolved]

NARRATIVE: CASE EVENT DATE: 20161229
